FAERS Safety Report 6082288-7 (Version None)
Quarter: 2009Q1

REPORT INFORMATION
  Report Type: 
  Country: None (occurrence: None)
  Receive Date: 20090123
  Receipt Date: 20080616
  Transmission Date: 20090719
  Serious: Yes (Other)
  Sender: FDA-Public Use
  Company Number: 570532

PATIENT
  Age: 16 Year
  Sex: Male
  Weight: 130 kg

DRUGS (6)
  1. VESANOID [Suspect]
     Indication: ACUTE PROMYELOCYTIC LEUKAEMIA
     Dosage: 30 MG 2 PER DAY ORAL
     Route: 048
     Dates: start: 20080519
  2. LORATADINE [Concomitant]
  3. DOCUSATE (DOCUSATE SODIUM) [Concomitant]
  4. RANITIDINE [Concomitant]
  5. SULFAMETHOXAZOLE AND TRIMETHOPRIM [Concomitant]
  6. TOPIRAMATE [Concomitant]

REACTIONS (2)
  - BENIGN INTRACRANIAL HYPERTENSION [None]
  - HEADACHE [None]
